FAERS Safety Report 20977799 (Version 1)
Quarter: 2022Q2

REPORT INFORMATION
  Report Type: Spontaneous
  Country: US (occurrence: US)
  Receive Date: 20220618
  Receipt Date: 20220618
  Transmission Date: 20220721
  Serious: Yes (Death, Other)
  Sender: FDA-Public Use
  Company Number: US-UNITED THERAPEUTICS-UNT-2022-013202

PATIENT
  Age: 74 Year
  Sex: Female

DRUGS (2)
  1. REMODULIN [Suspect]
     Active Substance: TREPROSTINIL
     Indication: Pulmonary arterial hypertension
     Dosage: UNK, CONTINUING
     Route: 058
     Dates: start: 202206
  2. REMODULIN [Suspect]
     Active Substance: TREPROSTINIL
     Dosage: 0.0163 ?G/KG, CONTINUING
     Route: 058
     Dates: start: 202206

REACTIONS (4)
  - Death [Fatal]
  - Blood pressure decreased [Unknown]
  - Dehydration [Unknown]
  - Lethargy [Unknown]

NARRATIVE: CASE EVENT DATE: 20220601
